FAERS Safety Report 8974180 (Version 1)
Quarter: 2012Q4

REPORT INFORMATION
  Report Type: Spontaneous
  Country: US (occurrence: None)
  Receive Date: 20121217
  Receipt Date: 20121217
  Transmission Date: 20130627
  Serious: Yes (Hospitalization)
  Sender: FDA-Public Use
  Company Number: None

PATIENT
  Age: 71 Year
  Sex: Female
  Weight: 66.68 kg

DRUGS (1)
  1. VESICARE 10 MG ASTELLAS PHARM [Suspect]
     Indication: OVERACTIVE BLADDER
     Route: 048

REACTIONS (6)
  - Constipation [None]
  - Nausea [None]
  - Muscle spasms [None]
  - Vomiting [None]
  - Diarrhoea [None]
  - Rectal haemorrhage [None]
